FAERS Safety Report 9252065 (Version 2)
Quarter: 2013Q3

REPORT INFORMATION
  Report Type: Spontaneous
  Country: DK (occurrence: CA)
  Receive Date: 20130424
  Receipt Date: 20130830
  Transmission Date: 20140515
  Serious: Yes (Hospitalization)
  Sender: FDA-Public Use
  Company Number: CA-FRI-1000044589

PATIENT
  Age: 67 Year
  Sex: Female
  Weight: 48 kg

DRUGS (2)
  1. ESCITALOPRAM [Suspect]
     Indication: ANXIETY
     Dosage: 10 MG
     Route: 048
     Dates: start: 201202
  2. ZOPICLONE [Concomitant]

REACTIONS (9)
  - Asthenia [Unknown]
  - Chest discomfort [Unknown]
  - Chills [Unknown]
  - Dyspnoea [Unknown]
  - Headache [Unknown]
  - Palpitations [Unknown]
  - Tremor [Unknown]
  - Malaise [Unknown]
  - Anxiety [Unknown]
